FAERS Safety Report 10276112 (Version 2)
Quarter: 2014Q3

REPORT INFORMATION
  Report Type: Spontaneous
  Country: US (occurrence: US)
  Receive Date: 20140703
  Receipt Date: 20140804
  Transmission Date: 20150326
  Serious: Yes (Hospitalization)
  Sender: FDA-Public Use
  Company Number: US-BAYER-2014-099406

PATIENT
  Age: 28 Year
  Sex: Female
  Weight: 73.16 kg

DRUGS (5)
  1. ALBUTEROL. [Concomitant]
     Active Substance: ALBUTEROL
     Indication: ASTHMA EXERCISE INDUCED
     Dosage: UNK, PRN
  2. ZYRTEC [CETIRIZINE HYDROCHLORIDE] [Concomitant]
     Route: 048
  3. CORAL CALCIUM [Concomitant]
     Dosage: DAILY
     Route: 048
  4. ZITHROMAX [Concomitant]
     Active Substance: AZITHROMYCIN DIHYDRATE
     Dosage: UNK
     Route: 048
     Dates: start: 20120627
  5. MIRENA [Suspect]
     Active Substance: LEVONORGESTREL
     Indication: CONTRACEPTION
     Dosage: 20 MCG/24HR, CONT
     Route: 015
     Dates: start: 20110526, end: 20120917

REACTIONS (8)
  - Uterine perforation [None]
  - Device issue [None]
  - Pain [None]
  - Urethral pain [None]
  - Injury [None]
  - Anxiety [None]
  - Emotional distress [None]
  - Depression [None]

NARRATIVE: CASE EVENT DATE: 2011
